FAERS Safety Report 7760027-9 (Version None)
Quarter: 2011Q3

REPORT INFORMATION
  Report Type: 
  Country: None (occurrence: None)
  Receive Date: 20110919
  Receipt Date: 20110908
  Transmission Date: 20111222
  Serious: Yes (Hospitalization, Other)
  Sender: FDA-Public Use
  Company Number: US-BAYER-2011-011850

PATIENT
  Age: 40 Year
  Sex: Female
  Weight: 54.422 kg

DRUGS (8)
  1. EFFEXOR [Concomitant]
     Indication: ANTIDEPRESSANT THERAPY
     Dosage: UNK
     Dates: start: 20050101, end: 20090101
  2. EFFEXOR [Concomitant]
     Indication: ANXIETY
  3. ASPIRIN [Concomitant]
     Dosage: UNK
     Dates: start: 20090101
  4. ZOLOFT [Concomitant]
     Indication: ANTIDEPRESSANT THERAPY
     Dosage: UNK
     Dates: start: 20090101
  5. ZOLOFT [Concomitant]
     Indication: ANXIETY
  6. YASMIN [Suspect]
     Indication: PRODUCT USED FOR UNKNOWN INDICATION
     Dosage: UNK
     Dates: start: 20030101, end: 20090316
  7. LIPITOR [Concomitant]
  8. LEVOTHYROXINE SODIUM [Concomitant]
     Indication: HYPOTHYROIDISM
     Dosage: UNK
     Dates: start: 20030101

REACTIONS (3)
  - MYOCARDIAL INFARCTION [None]
  - CHEST PAIN [None]
  - ACUTE MYOCARDIAL INFARCTION [None]
